FAERS Safety Report 19079883 (Version 3)
Quarter: 2021Q2

REPORT INFORMATION
  Report Type: Report from Study
  Country: US (occurrence: US)
  Receive Date: 20210331
  Receipt Date: 20210521
  Transmission Date: 20210717
  Serious: Yes (Hospitalization)
  Sender: FDA-Public Use
  Company Number: NVSC2021US068590

PATIENT
  Age: 6 Year
  Sex: Female
  Weight: 18.59 kg

DRUGS (2)
  1. PIQRAY [Suspect]
     Active Substance: ALPELISIB
     Indication: PIK3CA RELATED OVERGROWTH SPECTRUM
     Dosage: 50 MG, QD (ONCE DAILY)
     Route: 048
     Dates: start: 20200615
  2. FERRIC CARBOXYMALTOSE [Suspect]
     Active Substance: FERRIC CARBOXYMALTOSE
     Indication: IRON DEFICIENCY
     Dosage: 15 MG/KG
     Route: 042
     Dates: start: 20210315

REACTIONS (8)
  - Seizure [Recovering/Resolving]
  - Pyrexia [Recovered/Resolved]
  - Blood iron decreased [Unknown]
  - Serum ferritin decreased [Unknown]
  - Aspartate aminotransferase increased [Recovered/Resolved]
  - Alanine aminotransferase increased [Recovered/Resolved]
  - Status epilepticus [Recovered/Resolved]
  - Gamma-glutamyltransferase increased [Recovered/Resolved]

NARRATIVE: CASE EVENT DATE: 20210316
